FAERS Safety Report 20896651 (Version 1)
Quarter: 2022Q2

REPORT INFORMATION
  Report Type: Spontaneous
  Country: US (occurrence: US)
  Receive Date: 20220531
  Receipt Date: 20220531
  Transmission Date: 20220721
  Serious: No
  Sender: FDA-Public Use
  Company Number: US-PFIZER INC-202200756571

PATIENT
  Age: 40 Year
  Sex: Female

DRUGS (3)
  1. PAXLOVID [Suspect]
     Active Substance: NIRMATRELVIR\RITONAVIR
     Indication: COVID-19 treatment
     Dosage: UNK
     Dates: start: 20220513, end: 20220518
  2. DESLORATADINE [Concomitant]
     Active Substance: DESLORATADINE
     Dosage: UNK
     Dates: start: 20220301
  3. PEPCID [Concomitant]
     Active Substance: FAMOTIDINE
     Dosage: UNK

REACTIONS (3)
  - Breast pain [Not Recovered/Not Resolved]
  - Blood pressure increased [Not Recovered/Not Resolved]
  - Dyspepsia [Not Recovered/Not Resolved]

NARRATIVE: CASE EVENT DATE: 20220524
